FAERS Safety Report 8220069-6 (Version None)
Quarter: 2012Q1

REPORT INFORMATION
  Report Type: 
  Country: None (occurrence: None)
  Receive Date: 20120315
  Receipt Date: 20120306
  Transmission Date: 20120608
  Serious: Yes (Hospitalization)
  Sender: FDA-Public Use
  Company Number: B0786453A

PATIENT
  Age: 40 Year
  Sex: Female

DRUGS (1)
  1. ORLISTAT [Suspect]
     Indication: WEIGHT
     Dosage: 60 MG/PER DAY

REACTIONS (11)
  - FATIGUE [None]
  - ENCEPHALOPATHY [None]
  - ACUTE HEPATIC FAILURE [None]
  - NAUSEA [None]
  - ABDOMINAL DISCOMFORT [None]
  - CHOLESTASIS [None]
  - HEPATIC FIBROSIS [None]
  - COAGULOPATHY [None]
  - ANTINUCLEAR ANTIBODY POSITIVE [None]
  - LIVER TRANSPLANT [None]
  - DYSPNOEA [None]
